FAERS Safety Report 5005210-0 (Version None)
Quarter: 2006Q2

REPORT INFORMATION
  Report Type: 
  Country: None (occurrence: None)
  Receive Date: 20060512
  Receipt Date: 20060505
  Transmission Date: 20061013
  Serious: Yes (Hospitalization, Other)
  Sender: FDA-Public Use
  Company Number: HQWYE313131OCT05

PATIENT
  Age: 86 Year
  Sex: Female
  Weight: 92.62 kg

DRUGS (11)
  1. TEMSIROLIMUS (TEMSIROLIMUS, TABLET) [Suspect]
     Indication: BREAST CANCER METASTATIC
     Dosage: 30 MG 5X PER 2 WK, ORAL
     Route: 048
     Dates: start: 20050829, end: 20051014
  2. TEMSIROLIMUS (TEMSIROLIMUS, TABLET) [Suspect]
     Indication: BREAST CANCER METASTATIC
     Dosage: 30 MG 5X PER 2 WK, ORAL
     Route: 048
     Dates: start: 20051114
  3. LETROZOLE/TEMSIROLIMUS (LETROZOLE/TEMSIROLIMUS) [Concomitant]
  4. COUMADIN [Concomitant]
  5. AMARYL [Concomitant]
  6. DIOVAN [Concomitant]
  7. COLACE (DOCUSATE SODIUM) [Concomitant]
  8. PLETAL [Concomitant]
  9. PRAVACHOL [Concomitant]
  10. PROTONIX [Concomitant]
  11. LASIX [Concomitant]

REACTIONS (24)
  - ANAEMIA [None]
  - ASTHENIA [None]
  - BLOOD CREATININE INCREASED [None]
  - BLOOD PRESSURE SYSTOLIC INCREASED [None]
  - BODY TEMPERATURE INCREASED [None]
  - BREAST MASS [None]
  - CALCINOSIS [None]
  - CARDIOMEGALY [None]
  - DYSPNOEA [None]
  - EXOSTOSIS [None]
  - HAEMATOCRIT DECREASED [None]
  - HAEMOGLOBIN DECREASED [None]
  - HEART RATE INCREASED [None]
  - INTERNATIONAL NORMALISED RATIO INCREASED [None]
  - LETHARGY [None]
  - LUNG HYPERINFLATION [None]
  - LUNG INFILTRATION [None]
  - LUNG NEOPLASM [None]
  - METASTASES TO LUNG [None]
  - MONOCYTE PERCENTAGE INCREASED [None]
  - PNEUMONIA [None]
  - PROTHROMBIN TIME PROLONGED [None]
  - TEMPERATURE INTOLERANCE [None]
  - WHITE BLOOD CELL COUNT DECREASED [None]
